FAERS Safety Report 9896057 (Version 2)
Quarter: 2014Q1

REPORT INFORMATION
  Report Type: Spontaneous
  Country: US (occurrence: US)
  Receive Date: 20140213
  Receipt Date: 20140213
  Transmission Date: 20141002
  Serious: No
  Sender: FDA-Public Use
  Company Number: US-BRISTOL-MYERS SQUIBB COMPANY-19022532

PATIENT
  Age: 54 Year
  Sex: Female
  Weight: 58.96 kg

DRUGS (16)
  1. ABATACEPT SUBQ INJECTION 125MG/ML [Suspect]
     Dosage: 4 PACKS?1DF:125MG/ML.?ORENCIA STARTED SINCE2009
     Route: 058
     Dates: start: 201301
  2. REBIF [Suspect]
  3. AUBAGIO [Suspect]
  4. TECFIDERA [Suspect]
  5. FISH OIL [Concomitant]
     Dosage: CAP
  6. NEXIUM [Concomitant]
     Dosage: CAPS
  7. OMNICEF [Concomitant]
     Dosage: CAPS
  8. ACYCLOVIR [Concomitant]
     Dosage: TABS
  9. IBUPROFEN [Concomitant]
     Dosage: TABS
  10. POTASSIUM CHLORIDE [Concomitant]
     Dosage: TABS
  11. TRAMADOL HCL [Concomitant]
     Dosage: TABS
  12. TRIAMTERENE + HCTZ [Concomitant]
     Dosage: 1DF:37.5-25 UNITS NOS CAPS
  13. SINGULAIR [Concomitant]
     Dosage: TABS
  14. LEVOTHYROXIN [Concomitant]
     Dosage: TABS
  15. FLEXERIL [Concomitant]
     Dosage: TABS
  16. MEDROL [Concomitant]
     Dosage: TABS

REACTIONS (5)
  - Eye pain [Recovered/Resolved]
  - Dysstasia [Recovered/Resolved]
  - Nausea [Unknown]
  - Erythema [Unknown]
  - Rash pruritic [Recovering/Resolving]
